FAERS Safety Report 13546070 (Version 1)
Quarter: 2017Q2

REPORT INFORMATION
  Report Type: Spontaneous
  Country: US (occurrence: US)
  Receive Date: 20170514
  Receipt Date: 20170514
  Transmission Date: 20170830
  Serious: No
  Sender: FDA-Public Use
  Company Number: None

PATIENT
  Age: 31 Year
  Sex: Male
  Weight: 78.75 kg

DRUGS (1)
  1. MELATONIN 10 MG [Suspect]
     Active Substance: MELATONIN
     Dosage: ?          QUANTITY:1 TABLET(S);?

REACTIONS (1)
  - Liver function test increased [None]

NARRATIVE: CASE EVENT DATE: 20170419
